FAERS Safety Report 5753272-5 (Version None)
Quarter: 2008Q2

REPORT INFORMATION
  Report Type: 
  Country: None (occurrence: None)
  Receive Date: 20080530
  Receipt Date: 20071018
  Transmission Date: 20081010
  Serious: No
  Sender: FDA-Public Use
  Company Number: A0689360A

PATIENT
  Age: 42 Year
  Sex: Female

DRUGS (7)
  1. ALBUTEROL [Suspect]
     Indication: DRUG USE FOR UNKNOWN INDICATION
     Route: 055
  2. LISINOPRIL [Suspect]
  3. METFORMIN HCL [Suspect]
  4. NOVOFEM [Suspect]
  5. OMEPRAZOLE [Suspect]
  6. INSULIN [Suspect]
  7. UNSPECIFIED MEDICATION [Suspect]

REACTIONS (2)
  - BLOOD GLUCOSE FLUCTUATION [None]
  - BLOOD PRESSURE INCREASED [None]
